APPROVED DRUG PRODUCT: MODERIL
Active Ingredient: RESCINNAMINE
Strength: 0.25MG
Dosage Form/Route: TABLET;ORAL
Application: N010686 | Product #003
Applicant: PFIZER LABORATORIES DIV PFIZER INC
Approved: Approved Prior to Jan 1, 1982 | RLD: No | RS: No | Type: DISCN